FAERS Safety Report 6943985-1 (Version None)
Quarter: 2010Q3

REPORT INFORMATION
  Report Type: 
  Country: None (occurrence: None)
  Receive Date: 20100826
  Receipt Date: 20100817
  Transmission Date: 20110219
  Serious: Yes (Other)
  Sender: FDA-Public Use
  Company Number: US-ABBOTT-10P-163-0665089-00

PATIENT
  Sex: Male
  Weight: 102.15 kg

DRUGS (3)
  1. SIMCOR [Suspect]
     Indication: HIGH DENSITY LIPOPROTEIN DECREASED
     Dates: start: 20091201, end: 20100628
  2. SIMCOR [Suspect]
     Indication: BLOOD CHOLESTEROL INCREASED
  3. LOTREL [Concomitant]
     Indication: HYPERTENSION

REACTIONS (6)
  - ABDOMINAL PAIN [None]
  - APPENDICITIS [None]
  - COLORECTAL CANCER [None]
  - FATIGUE [None]
  - HAEMATOCHEZIA [None]
  - METASTASES TO LIVER [None]
